FAERS Safety Report 7169055-8 (Version None)
Quarter: 2010Q4

REPORT INFORMATION
  Report Type: 
  Country: None (occurrence: None)
  Receive Date: 20101216
  Receipt Date: 20100114
  Transmission Date: 20110411
  Serious: No
  Sender: FDA-Public Use
  Company Number: US-AMGEN-KDL385760

PATIENT

DRUGS (3)
  1. ENBREL [Suspect]
     Indication: PRODUCT USED FOR UNKNOWN INDICATION
     Dosage: 50 MG, QWK
     Route: 058
  2. ENALAPRIL [Concomitant]
     Dosage: 2.5 MG, UNK
     Route: 048
  3. LOVASTATIN [Concomitant]
     Dosage: 10 MG, UNK
     Route: 048

REACTIONS (1)
  - INJECTION SITE PAIN [None]
